FAERS Safety Report 9618833 (Version 1)
Quarter: 2013Q4

REPORT INFORMATION
  Report Type: Spontaneous
  Country: JP (occurrence: JP)
  Receive Date: 20131014
  Receipt Date: 20131014
  Transmission Date: 20140711
  Serious: Yes (Death)
  Sender: FDA-Public Use
  Company Number: JP-ELI_LILLY_AND_COMPANY-JP201310001110

PATIENT
  Age: 75 Year
  Sex: Female

DRUGS (1)
  1. ZYPREXA INTRA-MUSCULAR INJECTION [Suspect]
     Dosage: 10 MG, QD
     Route: 030
     Dates: start: 201307

REACTIONS (1)
  - Myocardial infarction [Fatal]
